FAERS Safety Report 21171546 (Version 4)
Quarter: 2022Q4

REPORT INFORMATION
  Report Type: Report from Study
  Country: CA (occurrence: CA)
  Receive Date: 20220804
  Receipt Date: 20221214
  Transmission Date: 20230113
  Serious: Yes (Other)
  Sender: FDA-Public Use
  Company Number: CA-MYLANLABS-2022M1083210

PATIENT
  Sex: Male
  Weight: 72.57 kg

DRUGS (11)
  1. HULIO [Suspect]
     Active Substance: ADALIMUMAB-FKJP
     Indication: Psoriatic arthropathy
     Dosage: 40 MILLIGRAM, BIWEEKLY
     Route: 065
     Dates: start: 20220723
  2. HULIO [Suspect]
     Active Substance: ADALIMUMAB-FKJP
     Indication: Rheumatoid arthritis
     Dosage: 40 MILLIGRAM, BIWEEKLY
     Route: 058
     Dates: start: 20220617
  3. SYNTHROID [Concomitant]
     Active Substance: LEVOTHYROXINE SODIUM
     Indication: Hypothyroidism
     Dosage: 150 MICROGRAM
     Route: 065
  4. CRESTOR [Concomitant]
     Active Substance: ROSUVASTATIN CALCIUM
     Indication: Prophylaxis
     Dosage: 20 MILLIGRAM
     Route: 065
  5. PANTOPRAZOLE [Concomitant]
     Active Substance: PANTOPRAZOLE
     Indication: Gastrooesophageal reflux disease
     Dosage: 40 MILLIGRAM
     Route: 065
  6. VITAMIN D [Concomitant]
     Active Substance: VITAMIN D NOS
     Dosage: UNK
     Route: 065
  7. CALCIUM [Concomitant]
     Active Substance: CALCIUM
     Dosage: UNK
     Route: 065
  8. FLONASE [Concomitant]
     Active Substance: FLUTICASONE PROPIONATE
     Indication: Hypersensitivity
     Dosage: UNK
     Route: 065
  9. ACETAMINOPHEN\CODEINE PHOSPHATE [Concomitant]
     Active Substance: ACETAMINOPHEN\CODEINE PHOSPHATE
     Indication: Pain
     Dosage: UNK
     Route: 065
  10. VOLTAREN [Concomitant]
     Active Substance: DICLOFENAC SODIUM
     Indication: Pain
     Dosage: 10 PERCENT
     Route: 065
  11. SULFASALAZINE [Concomitant]
     Active Substance: SULFASALAZINE
     Dosage: 500 MILLIGRAM, BID
     Route: 065

REACTIONS (7)
  - Sjogren^s syndrome [Not Recovered/Not Resolved]
  - Insomnia [Unknown]
  - Inappropriate schedule of product administration [Unknown]
  - Drug ineffective [Unknown]
  - Weight decreased [Unknown]
  - Arthropathy [Not Recovered/Not Resolved]
  - Nausea [Unknown]
